FAERS Safety Report 17519867 (Version 1)
Quarter: 2020Q1

REPORT INFORMATION
  Report Type: Spontaneous
  Country: US (occurrence: US)
  Receive Date: 20200309
  Receipt Date: 20200309
  Transmission Date: 20200409
  Serious: Yes (Other)
  Sender: FDA-Public Use
  Company Number: None

PATIENT
  Age: 56 Year
  Sex: Female
  Weight: 85.5 kg

DRUGS (1)
  1. LEVOTHYROXINE SODIUM 25 MCG TABS SANDOZ [Suspect]
     Active Substance: LEVOTHYROXINE SODIUM
     Indication: THYROID DISORDER
     Dosage: ?          OTHER STRENGTH:MCG;QUANTITY:1 TABLET(S);?
     Route: 048
     Dates: start: 20200224, end: 20200226

REACTIONS (3)
  - Product substitution issue [None]
  - Fatigue [None]
  - Joint stiffness [None]

NARRATIVE: CASE EVENT DATE: 20200226
